FAERS Safety Report 6102134-2 (Version None)
Quarter: 2009Q1

REPORT INFORMATION
  Report Type: 
  Country: None (occurrence: None)
  Receive Date: 20090304
  Receipt Date: 20090226
  Transmission Date: 20090719
  Serious: Yes (Hospitalization)
  Sender: FDA-Public Use
  Company Number: US-MERCK-0812USA04748

PATIENT
  Age: 78 Year
  Sex: Female
  Weight: 103 kg

DRUGS (2)
  1. JANUMET [Suspect]
     Indication: TYPE 2 DIABETES MELLITUS
     Route: 048
     Dates: start: 20080506, end: 20081104
  2. OXYGEN [Concomitant]

REACTIONS (11)
  - ARTHRALGIA [None]
  - BREAST DISCHARGE [None]
  - BRONCHITIS [None]
  - CATARACT [None]
  - COUGH [None]
  - DRUG HYPERSENSITIVITY [None]
  - FALL [None]
  - MENISCUS LESION [None]
  - NASOPHARYNGITIS [None]
  - PNEUMONIA [None]
  - TENDON RUPTURE [None]
